FAERS Safety Report 13769690 (Version 1)
Quarter: 2017Q3

REPORT INFORMATION
  Report Type: Spontaneous
  Country: CA (occurrence: CA)
  Receive Date: 20170719
  Receipt Date: 20170719
  Transmission Date: 20171127
  Serious: Yes (Other)
  Sender: FDA-Public Use
  Company Number: CA-PFIZER INC-2784509

PATIENT
  Age: 72 Year
  Sex: Male
  Weight: 70 kg

DRUGS (2)
  1. METHOTREXATE SODIUM. [Suspect]
     Active Substance: METHOTREXATE SODIUM
     Indication: PSORIASIS
     Dosage: 5 DF, FREQ: 1 WEEK; INTERVAL: 1
     Route: 048
  2. REMICADE [Suspect]
     Active Substance: INFLIXIMAB
     Indication: PSORIASIS
     Dosage: 400 MG, FREQ: 1 WEEK; INTERVAL: 6
     Route: 042

REACTIONS (4)
  - Monocytosis [Unknown]
  - Blood creatinine increased [Unknown]
  - Normochromic normocytic anaemia [Unknown]
  - Glomerular filtration rate decreased [Unknown]
